FAERS Safety Report 20321966 (Version 1)
Quarter: 2022Q1

REPORT INFORMATION
  Report Type: Spontaneous
  Country: US (occurrence: US)
  Receive Date: 20220111
  Receipt Date: 20220111
  Transmission Date: 20220423
  Serious: Yes (Death, Hospitalization, Other)
  Sender: FDA-Public Use
  Company Number: US-VALIDUS PHARMACEUTICALS LLC-US-VDP-2021-014885

PATIENT

DRUGS (4)
  1. LASIX [Suspect]
     Active Substance: FUROSEMIDE
     Indication: Oedema
     Dosage: 20 MG
     Route: 048
     Dates: start: 20160729, end: 20161204
  2. SPIRONOLACTONE [Concomitant]
     Active Substance: SPIRONOLACTONE
     Indication: Oedema
     Dosage: 25 MG
     Route: 048
     Dates: start: 20160729, end: 20161204
  3. SPIRONOLACTONE [Concomitant]
     Active Substance: SPIRONOLACTONE
     Dosage: UNK
     Route: 048
     Dates: start: 20161209
  4. CRIZOTINIB [Concomitant]
     Active Substance: CRIZOTINIB
     Indication: Metastases to stomach
     Dosage: 250 MG, BID
     Route: 048
     Dates: start: 20160803, end: 20161204

REACTIONS (4)
  - Cardiac arrest [Fatal]
  - Hyponatraemia [Not Recovered/Not Resolved]
  - Hypoalbuminaemia [Not Recovered/Not Resolved]
  - Ascites [Not Recovered/Not Resolved]

NARRATIVE: CASE EVENT DATE: 20161204
